FAERS Safety Report 5266017-2 (Version None)
Quarter: 2007Q1

REPORT INFORMATION
  Report Type: 
  Country: None (occurrence: None)
  Receive Date: 20070313
  Receipt Date: 20070313
  Transmission Date: 20070707
  Serious: Yes (Death)
  Sender: FDA-Public Use
  Company Number: None

PATIENT
  Age: 49 Year
  Sex: Male

DRUGS (1)
  1. CLOZAPINE [Suspect]
     Indication: MENTAL DISORDER
     Dosage: 375MG DOSES -TOTAL DAILY PO
     Route: 048
     Dates: start: 20061210, end: 20061226

REACTIONS (3)
  - CARDIO-RESPIRATORY ARREST [None]
  - EOSINOPHILIC MYOCARDITIS [None]
  - UPPER RESPIRATORY TRACT INFECTION [None]
